FAERS Safety Report 11786444 (Version 1)
Quarter: 2015Q4

REPORT INFORMATION
  Report Type: Spontaneous
  Country: US (occurrence: None)
  Receive Date: 20151125
  Receipt Date: 20151125
  Transmission Date: 20160305
  Serious: Yes (Death)
  Sender: FDA-Public Use
  Company Number: None

PATIENT
  Age: 58 Year
  Sex: Male
  Weight: 85.5 kg

DRUGS (1)
  1. LEDIPASVIR/SOFOSBUVIR [Suspect]
     Active Substance: LEDIPASVIR\SOFOSBUVIR
     Dosage: MG  PO
     Route: 048
     Dates: start: 20150806, end: 20151001

REACTIONS (7)
  - Emphysema [None]
  - Lymphadenopathy [None]
  - Lung adenocarcinoma [None]
  - Multi-organ failure [None]
  - Acute respiratory distress syndrome [None]
  - Interstitial lung disease [None]
  - Pleural effusion [None]

NARRATIVE: CASE EVENT DATE: 20151106
